FAERS Safety Report 10252412 (Version 1)
Quarter: 2014Q2

REPORT INFORMATION
  Report Type: Spontaneous
  Country: US (occurrence: US)
  Receive Date: 20140623
  Receipt Date: 20140623
  Transmission Date: 20141212
  Serious: Yes (Other)
  Sender: FDA-Public Use
  Company Number: US-BAYER-2014-091689

PATIENT
  Age: 22 Year
  Sex: Female
  Weight: 58.05 kg

DRUGS (5)
  1. YASMIN [Suspect]
  2. ALBUTEROL [Concomitant]
     Dosage: 2 PUFF(S), 4 TIMES A DAY
     Dates: start: 20070307
  3. DOXYCYCLINE [Concomitant]
     Indication: NASOPHARYNGITIS
     Dosage: 100 MG, BID
  4. BROMFENEX [Concomitant]
     Dosage: 120-12MG
     Dates: start: 20070521
  5. GARDASIL [Concomitant]

REACTIONS (1)
  - Deep vein thrombosis [Not Recovered/Not Resolved]
